FAERS Safety Report 8561532-8 (Version None)
Quarter: 2012Q3

REPORT INFORMATION
  Report Type: 
  Country: None (occurrence: None)
  Receive Date: 20120802
  Receipt Date: 20120718
  Transmission Date: 20120928
  Serious: No
  Sender: FDA-Public Use
  Company Number: US-ASTRAZENECA-2012SE50504

PATIENT
  Sex: Male

DRUGS (1)
  1. METOPROLOL SUCCINATE [Suspect]
     Dosage: 100 MG EVERY MORNING AND 50 MG EVERY NIGHT
     Route: 048

REACTIONS (2)
  - HEART RATE DECREASED [None]
  - BLOOD PRESSURE DIFFERENCE OF EXTREMITIES [None]
